FAERS Safety Report 6625072-5 (Version None)
Quarter: 2010Q1

REPORT INFORMATION
  Report Type: 
  Country: None (occurrence: None)
  Receive Date: 20100310
  Receipt Date: 20090925
  Transmission Date: 20100710
  Serious: No
  Sender: FDA-Public Use
  Company Number: US-BIOGENIDEC-2009BI030876

PATIENT
  Age: 40 Year
  Sex: Female

DRUGS (3)
  1. AVONEX [Suspect]
     Indication: MULTIPLE SCLEROSIS
     Route: 030
     Dates: start: 20090401
  2. PNEUMONIA SHOT [Concomitant]
     Indication: PROPHYLAXIS
     Route: 030
     Dates: start: 20090923, end: 20090923
  3. TETANUS SHOT [Concomitant]
     Indication: PROPHYLAXIS
     Route: 030
     Dates: start: 20090923, end: 20090923

REACTIONS (7)
  - CARPAL TUNNEL SYNDROME [None]
  - GAIT DISTURBANCE [None]
  - HYPOAESTHESIA [None]
  - INJECTION SITE ERYTHEMA [None]
  - MUSCULOSKELETAL STIFFNESS [None]
  - PAIN IN EXTREMITY [None]
  - PYREXIA [None]
